FAERS Safety Report 8690979 (Version 2)
Quarter: 2013Q4

REPORT INFORMATION
  Report Type: Spontaneous
  Country: US (occurrence: US)
  Receive Date: 20120730
  Receipt Date: 20131101
  Transmission Date: 20140711
  Serious: No
  Sender: FDA-Public Use
  Company Number: US-009507513-1207USA008422

PATIENT
  Age: 52 Year
  Sex: Female

DRUGS (4)
  1. ZOCOR [Suspect]
     Dosage: UNK
     Route: 048
     Dates: start: 201011, end: 201205
  2. LISINOPRIL [Concomitant]
  3. LOVAZA [Concomitant]
  4. PATANASE [Concomitant]

REACTIONS (2)
  - Arthropathy [Recovered/Resolved]
  - Myalgia [Recovered/Resolved]
